FAERS Safety Report 24945814 (Version 1)
Quarter: 2025Q1

REPORT INFORMATION
  Report Type: Report from Study
  Country: CA (occurrence: CA)
  Receive Date: 20250209
  Receipt Date: 20250209
  Transmission Date: 20250408
  Serious: Yes (Other)
  Sender: AMGEN
  Company Number: CA-BEH-2025194428

PATIENT
  Age: 83 Year
  Sex: Female

DRUGS (2)
  1. AVACOPAN [Suspect]
     Active Substance: AVACOPAN
     Indication: Vasculitis
     Dosage: 30 MG, BID
     Route: 048
     Dates: start: 20250110
  2. AVACOPAN [Suspect]
     Active Substance: AVACOPAN
     Indication: Off label use

REACTIONS (4)
  - Gastric ulcer [Unknown]
  - Blood disorder [Unknown]
  - Oesophageal infection [Unknown]
  - Off label use [Unknown]

NARRATIVE: CASE EVENT DATE: 20250101
